FAERS Safety Report 24353971 (Version 1)
Quarter: 2024Q3

REPORT INFORMATION
  Report Type: Spontaneous
  Country: AT (occurrence: AT)
  Receive Date: 20240923
  Receipt Date: 20240923
  Transmission Date: 20241016
  Serious: Yes (Hospitalization)
  Sender: ABBVIE
  Company Number: AT-ELI_LILLY_AND_COMPANY-AT202409004046

PATIENT
  Sex: Female

DRUGS (2)
  1. VENETOCLAX [Suspect]
     Active Substance: VENETOCLAX
     Indication: Chemotherapy
     Dosage: UNK UNK, UNKNOWN
     Route: 048
  2. PIRTOBRUTINIB [Suspect]
     Active Substance: PIRTOBRUTINIB
     Indication: Chronic lymphocytic leukaemia
     Dosage: UNK UNK, UNKNOWN
     Route: 065

REACTIONS (2)
  - Inflammation [Unknown]
  - COVID-19 [Unknown]
